FAERS Safety Report 7418972-X (Version None)
Quarter: 2011Q2

REPORT INFORMATION
  Report Type: 
  Country: None (occurrence: None)
  Receive Date: 20110415
  Receipt Date: 20110404
  Transmission Date: 20111010
  Serious: Yes (Hospitalization)
  Sender: FDA-Public Use
  Company Number: US-ELI_LILLY_AND_COMPANY-US201104002014

PATIENT
  Sex: Female

DRUGS (12)
  1. FORTEO [Suspect]
     Indication: OSTEOPOROSIS
     Dosage: 20 UG, QD
     Route: 065
     Dates: start: 20100801
  2. HYDROXYUREA [Concomitant]
  3. DIGOXIN [Concomitant]
  4. MEDAZOLE                           /00012501/ [Concomitant]
  5. LISINOPRIL [Concomitant]
  6. REQUIP [Concomitant]
  7. NEUROTIN                           /00949202/ [Concomitant]
  8. CYMBALTA [Concomitant]
  9. AGGRENOX [Concomitant]
  10. NIFEDIAC [Concomitant]
  11. FOLBIC [Concomitant]
  12. MILK OF MAGNESIA TAB [Concomitant]
     Dosage: UNK UNK, BID

REACTIONS (2)
  - DIVERTICULITIS [None]
  - ASTHENIA [None]
